FAERS Safety Report 9124038 (Version 2)
Quarter: 2013Q1

REPORT INFORMATION
  Report Type: Spontaneous
  Country: US (occurrence: US)
  Receive Date: 20130116
  Receipt Date: 20130122
  Transmission Date: 20140127
  Serious: Yes (Death, Hospitalization)
  Sender: FDA-Public Use
  Company Number: US-009507513-1301USA005547

PATIENT
  Sex: Male

DRUGS (2)
  1. ZOLINZA [Suspect]
     Indication: PLASMA CELL MYELOMA
     Dosage: 2 DF, BID
     Route: 048
     Dates: start: 20121115
  2. ZOLINZA [Suspect]
     Indication: MYELODYSPLASTIC SYNDROME

REACTIONS (4)
  - Death [Fatal]
  - Full blood count decreased [Unknown]
  - Platelet count decreased [Unknown]
  - Inappropriate schedule of drug administration [Unknown]
